FAERS Safety Report 7170524-5 (Version None)
Quarter: 2010Q4

REPORT INFORMATION
  Report Type: 
  Country: None (occurrence: None)
  Receive Date: 20101217
  Receipt Date: 20101207
  Transmission Date: 20110411
  Serious: Yes (Other)
  Sender: FDA-Public Use
  Company Number: PHHY2009DE45652

PATIENT
  Sex: Female

DRUGS (3)
  1. SANDOSTATIN [Suspect]
     Indication: MALIGNANT NEOPLASM OF ISLETS OF LANGERHANS
     Dosage: 1440 MCG/DAY (60 MCG/H)
     Route: 042
     Dates: start: 20090101, end: 20090101
  2. SANDOSTATIN [Suspect]
     Indication: HYPERINSULINISM
     Dosage: 1200 MCG/DAY
     Route: 042
     Dates: start: 20090101
  3. DIAZOXIDE [Concomitant]
     Indication: HYPERINSULINISM
     Dosage: 450 MG/D
     Dates: end: 20090101

REACTIONS (5)
  - CAESAREAN SECTION [None]
  - CHOLELITHIASIS [None]
  - DRUG EXPOSURE DURING PREGNANCY [None]
  - INJECTION SITE ERYTHEMA [None]
  - INJECTION SITE PAIN [None]
